FAERS Safety Report 14892090 (Version 1)
Quarter: 2018Q2

REPORT INFORMATION
  Report Type: Spontaneous
  Country: DE (occurrence: DE)
  Receive Date: 20180514
  Receipt Date: 20180514
  Transmission Date: 20180711
  Serious: Yes (Life-Threatening, Hospitalization)
  Sender: FDA-Public Use
  Company Number: DE-BAYER-2018-089250

PATIENT

DRUGS (2)
  1. GADOVIST [Suspect]
     Active Substance: GADOBUTROL
     Indication: NUCLEAR MAGNETIC RESONANCE IMAGING
     Dosage: 1 DF, ONCE
     Dates: start: 201712, end: 201712
  2. GADOLINIUM IN UNSPECIFIED DRUG [Suspect]
     Active Substance: GADOLINIUM
     Dosage: 1 DF, ONCE
     Dates: start: 2006, end: 2006

REACTIONS (4)
  - Pain [None]
  - Dyspnoea [None]
  - Oedema [None]
  - Inflammation [None]

NARRATIVE: CASE EVENT DATE: 2006
